FAERS Safety Report 7784611-1 (Version None)
Quarter: 2011Q3

REPORT INFORMATION
  Report Type: 
  Country: None (occurrence: None)
  Receive Date: 20110926
  Receipt Date: 20110912
  Transmission Date: 20111222
  Serious: Yes (Other)
  Sender: FDA-Public Use
  Company Number: GER/UKI/11/0021136

PATIENT
  Age: 26 Year
  Sex: Male

DRUGS (3)
  1. FLUOXETINE HYDROCHLORIDE [Suspect]
     Indication: DEPRESSION
     Dosage: SEE IMAGE
     Dates: start: 20100101
  2. SERTRALINE HYDROCHLORIDE [Concomitant]
  3. QUETIAPINE FUMARATE [Concomitant]

REACTIONS (7)
  - SUICIDAL IDEATION [None]
  - PSYCHOTIC DISORDER [None]
  - DYSTHYMIC DISORDER [None]
  - ILLUSION [None]
  - CONDITION AGGRAVATED [None]
  - HALLUCINATION, AUDITORY [None]
  - AGITATION [None]
